FAERS Safety Report 7957029-6 (Version None)
Quarter: 2011Q4

REPORT INFORMATION
  Report Type: 
  Country: None (occurrence: None)
  Receive Date: 20111205
  Receipt Date: 20111205
  Transmission Date: 20120403
  Serious: No
  Sender: FDA-Public Use
  Company Number: None

PATIENT
  Age: 17 Year
  Sex: Female
  Weight: 54.431 kg

DRUGS (1)
  1. LEVOFLOXACIN [Suspect]
     Indication: BRONCHITIS
     Dosage: 1 TAB
     Route: 048
     Dates: start: 20111101, end: 20111101

REACTIONS (5)
  - DYSPNOEA [None]
  - TENDON DISORDER [None]
  - TEMPERATURE INTOLERANCE [None]
  - INFECTION [None]
  - PAIN [None]
